FAERS Safety Report 4314674-7 (Version None)
Quarter: 2004Q1

REPORT INFORMATION
  Report Type: 
  Country: None (occurrence: None)
  Receive Date: 20040309
  Receipt Date: 20040309
  Transmission Date: 20041129
  Serious: Yes (Other)
  Sender: FDA-Public Use
  Company Number: None

PATIENT
  Age: 64 Year
  Sex: Male
  Weight: 95.2554 kg

DRUGS (1)
  1. LEVAQUIN [Suspect]
     Indication: PROSTATITIS
     Dosage: 500 MG DAILY
     Dates: start: 20040211, end: 20040224

REACTIONS (8)
  - BURNING SENSATION [None]
  - DIFFICULTY IN WALKING [None]
  - FEELING ABNORMAL [None]
  - INSOMNIA [None]
  - MUSCLE CRAMP [None]
  - MUSCLE TIGHTNESS [None]
  - MUSCLE TWITCHING [None]
  - PAIN [None]
